FAERS Safety Report 8622635-2 (Version None)
Quarter: 2012Q3

REPORT INFORMATION
  Report Type: 
  Country: None (occurrence: None)
  Receive Date: 20120827
  Receipt Date: 20120816
  Transmission Date: 20120928
  Serious: Yes (Other)
  Sender: FDA-Public Use
  Company Number: BR-JNJFOC-20120810030

PATIENT
  Sex: Female
  Weight: 70 kg

DRUGS (6)
  1. HYDROXYCHLOROQUINE SULFATE [Concomitant]
     Indication: RHEUMATOID ARTHRITIS
     Route: 065
     Dates: start: 19990101
  2. ALL OTHER THERAPEUTICS [Concomitant]
     Indication: MINERAL SUPPLEMENTATION
     Route: 065
     Dates: start: 20100101
  3. SYSTEN CONTI [Concomitant]
     Indication: HORMONE REPLACEMENT THERAPY
     Route: 062
     Dates: start: 20020101
  4. REMICADE [Suspect]
     Indication: RHEUMATOID ARTHRITIS
     Route: 042
     Dates: start: 20120720
  5. HARPAGOPHYTUM PROCUMBENS [Concomitant]
     Indication: ARTHRITIS
     Route: 065
     Dates: start: 20120201
  6. REMICADE [Suspect]
     Route: 042
     Dates: start: 20120413

REACTIONS (9)
  - TONSILLITIS [None]
  - DRUG INEFFECTIVE [None]
  - NIGHT SWEATS [None]
  - BACK PAIN [None]
  - EYE PRURITUS [None]
  - INFLUENZA [None]
  - SKIN FISSURES [None]
  - ARTHRALGIA [None]
  - OEDEMA PERIPHERAL [None]
